FAERS Safety Report 8535667-X (Version None)
Quarter: 2012Q3

REPORT INFORMATION
  Report Type: 
  Country: None (occurrence: None)
  Receive Date: 20120725
  Receipt Date: 20120719
  Transmission Date: 20120928
  Serious: No
  Sender: FDA-Public Use
  Company Number: US-PFIZER INC-2012175439

PATIENT
  Sex: Male
  Weight: 83.9 kg

DRUGS (6)
  1. SULFAMETHOXAZOLE AND TRIMETHOPRIM [Concomitant]
     Indication: LOCALISED INFECTION
     Dosage: 800/160 MG TWO TIMES A DAY
  2. METFORMIN [Concomitant]
     Indication: DIABETES MELLITUS
     Dosage: 1000 MG, 2X/DAY
  3. INSULIN [Concomitant]
     Indication: DIABETES MELLITUS
     Dosage: 65 IU, DAILY
  4. LYRICA [Suspect]
     Indication: FIBROMYALGIA
     Dosage: UNK
     Route: 048
     Dates: start: 20100101
  5. LYRICA [Suspect]
     Indication: NEUROPATHY PERIPHERAL
  6. CELEBREX [Suspect]
     Indication: ARTHRITIS
     Dosage: UNK
     Route: 048
     Dates: start: 20100101

REACTIONS (2)
  - BURNING SENSATION [None]
  - PAIN [None]
